FAERS Safety Report 7342921-6 (Version None)
Quarter: 2011Q1

REPORT INFORMATION
  Report Type: 
  Country: None (occurrence: None)
  Receive Date: 20110310
  Receipt Date: 20110303
  Transmission Date: 20110831
  Serious: Yes (Hospitalization)
  Sender: FDA-Public Use
  Company Number: SG-ROXANE LABORATORIES, INC.-2011-RO-00253RO

PATIENT
  Age: 53 Year
  Sex: Male

DRUGS (3)
  1. HALOPERIDOL [Suspect]
     Dosage: 5 MG
  2. LORAZEPAM [Suspect]
     Dosage: 1 MG
  3. RISPERDONE [Suspect]
     Dosage: 1 MG
     Dates: start: 20090521

REACTIONS (3)
  - RHABDOMYOLYSIS [None]
  - PNEUMONIA ASPIRATION [None]
  - NEUROLEPTIC MALIGNANT SYNDROME [None]
